FAERS Safety Report 6498634-6 (Version None)
Quarter: 2009Q4

REPORT INFORMATION
  Report Type: 
  Country: None (occurrence: None)
  Receive Date: 20091127
  Receipt Date: 20090916
  Transmission Date: 20100525
  Serious: Yes (Other)
  Sender: FDA-Public Use
  Company Number: 291879

PATIENT
  Age: 59 Year
  Sex: Female
  Weight: 99.3 kg

DRUGS (5)
  1. NOVOLOG [Suspect]
     Indication: DIABETES MELLITUS
     Dosage: IU,QD, SUBCTAN.-PUMP
     Route: 058
     Dates: start: 20090801
  2. NOVOLOG [Suspect]
     Dosage: IU, QD, SUBCUTAN.-PUMP
     Route: 058
     Dates: start: 20090801
  3. BACLOFEN [Concomitant]
  4. SIMVASTATIN [Concomitant]
  5. HYDROCODONE (HYDROCODONE) [Concomitant]

REACTIONS (2)
  - BLOOD GLUCOSE FLUCTUATION [None]
  - BLOOD GLUCOSE INCREASED [None]
